FAERS Safety Report 5365481-8 (Version None)
Quarter: 2007Q2

REPORT INFORMATION
  Report Type: 
  Country: None (occurrence: None)
  Receive Date: 20070530
  Receipt Date: 20070127
  Transmission Date: 20071010
  Serious: No
  Sender: FDA-Public Use
  Company Number: 2007PV029146

PATIENT
  Age: 64 Year
  Sex: Male
  Weight: 76.6579 kg

DRUGS (5)
  1. BYETTA [Suspect]
     Indication: DIABETES MELLITUS NON-INSULIN-DEPENDENT
     Dosage: 5 MCG;BID;SC
     Route: 058
     Dates: start: 20070116
  2. METFORMIN HCL [Concomitant]
  3. AVANDIA [Concomitant]
  4. AMARYL [Concomitant]
  5. LANTUS [Concomitant]

REACTIONS (6)
  - BLOOD GLUCOSE DECREASED [None]
  - BLOOD GLUCOSE INCREASED [None]
  - COLD SWEAT [None]
  - FEELING COLD [None]
  - HUNGER [None]
  - WEIGHT DECREASED [None]
